FAERS Safety Report 13695139 (Version 12)
Quarter: 2018Q4

REPORT INFORMATION
  Report Type: Report from Study
  Country: CN (occurrence: CN)
  Receive Date: 20170627
  Receipt Date: 20181127
  Transmission Date: 20190204
  Serious: Yes (Hospitalization)
  Sender: FDA-Public Use
  Company Number: CN-UNITED THERAPEUTICS-UNT-2017-008374

PATIENT
  Age: 42 Year
  Sex: Female
  Weight: 47 kg

DRUGS (9)
  1. FUROSEMIDE                         /00032602/ [Concomitant]
     Active Substance: FUROSEMIDE
     Indication: COR PULMONALE
     Dosage: 20 MG, TOTAL DAILY DOSE
     Route: 065
     Dates: start: 20170414
  2. UT-15C SR [Suspect]
     Active Substance: TREPROSTINIL DIOLAMINE
     Dosage: UNK
     Route: 048
  3. UT-15C SR [Suspect]
     Active Substance: TREPROSTINIL DIOLAMINE
     Indication: PULMONARY ARTERIAL HYPERTENSION
     Dosage: 6.375 MG, TID
     Route: 048
     Dates: start: 20170503, end: 20170528
  4. UT-15C SR [Suspect]
     Active Substance: TREPROSTINIL DIOLAMINE
     Dosage: UNK
     Route: 048
  5. SPIRONOLACTONE. [Concomitant]
     Active Substance: SPIRONOLACTONE
     Indication: COR PULMONALE
     Dosage: 40MG, TOTAL DAILY DOSE
     Route: 065
     Dates: start: 20170414
  6. UT-15C SR [Suspect]
     Active Substance: TREPROSTINIL DIOLAMINE
     Dosage: UNK
     Route: 048
  7. BIFIDOBACTERIUM ANIMALIS [Concomitant]
     Indication: GASTROINTESTINAL DISORDER
     Dosage: 4.5 G, TOTAL DAILY DOSE
     Route: 065
     Dates: start: 20170401
  8. AMBRISENTAN [Concomitant]
     Active Substance: AMBRISENTAN
     Indication: PULMONARY ARTERIAL HYPERTENSION
     Dosage: 5 MG, TOTAL DAILY DOSE
     Route: 065
     Dates: start: 20160419
  9. UT-15C SR [Suspect]
     Active Substance: TREPROSTINIL DIOLAMINE
     Dosage: UNK
     Route: 048
     Dates: start: 20160201

REACTIONS (7)
  - Hyperthyroidism [Recovered/Resolved with Sequelae]
  - Gastrooesophageal reflux disease [Recovered/Resolved]
  - Gastrointestinal disorder [Recovered/Resolved]
  - Right ventricular dysfunction [Recovered/Resolved with Sequelae]
  - Cor pulmonale [Recovered/Resolved with Sequelae]
  - Anaemia [Recovered/Resolved]
  - Peripheral arterial occlusive disease [Recovered/Resolved]

NARRATIVE: CASE EVENT DATE: 20170513
